FAERS Safety Report 22134449 (Version 1)
Quarter: 2023Q1

REPORT INFORMATION
  Report Type: Spontaneous
  Country: US (occurrence: US)
  Receive Date: 20230324
  Receipt Date: 20230324
  Transmission Date: 20230418
  Serious: No
  Sender: FDA-Public Use
  Company Number: US-STRIDES ARCOLAB LIMITED-2022SP016635

PATIENT
  Age: 20 Year
  Sex: Female

DRUGS (1)
  1. AMPICILLIN TRIHYDRATE [Suspect]
     Active Substance: AMPICILLIN TRIHYDRATE
     Indication: Evidence based treatment
     Dosage: UNK
     Route: 065

REACTIONS (1)
  - Maternal exposure during pregnancy [Unknown]
